FAERS Safety Report 14343338 (Version 1)
Quarter: 2018Q1

REPORT INFORMATION
  Report Type: Spontaneous
  Country: US (occurrence: US)
  Receive Date: 20180102
  Receipt Date: 20180102
  Transmission Date: 20180509
  Serious: Yes (Other)
  Sender: FDA-Public Use
  Company Number: US-ELI_LILLY_AND_COMPANY-US201712012608

PATIENT
  Sex: Male

DRUGS (1)
  1. AXIRON [Suspect]
     Active Substance: TESTOSTERONE
     Indication: BLOOD TESTOSTERONE ABNORMAL
     Dosage: UNK UNK, UNKNOWN
     Route: 065
     Dates: start: 201305, end: 201308

REACTIONS (3)
  - Optic ischaemic neuropathy [Unknown]
  - Blindness unilateral [Unknown]
  - Embolic stroke [Unknown]

NARRATIVE: CASE EVENT DATE: 20130806
